FAERS Safety Report 15762697 (Version 1)
Quarter: 2018Q4

REPORT INFORMATION
  Report Type: Spontaneous
  Country: US (occurrence: US)
  Receive Date: 20181226
  Receipt Date: 20181226
  Transmission Date: 20190205
  Serious: Yes (Other)
  Sender: FDA-Public Use
  Company Number: US-PFIZER INC-2018524534

PATIENT
  Sex: Female
  Weight: 77.11 kg

DRUGS (1)
  1. NORVASC [Suspect]
     Active Substance: AMLODIPINE BESYLATE
     Dosage: UNK (4 NORVASC, THEN WENT DOWN TO 3, THEN DOWN TO 2)

REACTIONS (3)
  - Intracranial aneurysm [Unknown]
  - Somnolence [Unknown]
  - Intentional product misuse [Unknown]
